FAERS Safety Report 12422103 (Version 5)
Quarter: 2017Q3

REPORT INFORMATION
  Report Type: Report from Study
  Country: PL (occurrence: PL)
  Receive Date: 20160531
  Receipt Date: 20170926
  Transmission Date: 20171127
  Serious: Yes (Hospitalization)
  Sender: FDA-Public Use
  Company Number: PL-ROCHE-1766211

PATIENT
  Age: 53 Year
  Sex: Female
  Weight: 86 kg

DRUGS (17)
  1. TRILAC (POLAND) [Concomitant]
     Indication: ABDOMINAL PAIN LOWER
     Route: 048
     Dates: start: 20160318
  2. POLPRAZOL [Concomitant]
     Active Substance: OMEPRAZOLE
     Indication: DYSPEPSIA
     Route: 048
     Dates: start: 20160329, end: 20170110
  3. ESPUMISAN [Concomitant]
     Active Substance: DIMETHICONE
     Indication: ABDOMINAL PAIN LOWER
     Route: 048
     Dates: start: 20160325
  4. EUTHYROX [Concomitant]
     Active Substance: LEVOTHYROXINE SODIUM
     Indication: HYPOTHYROIDISM
     Route: 048
     Dates: start: 20160421
  5. DOXAR (POLAND) [Concomitant]
     Indication: HYPERTENSION
     Route: 048
     Dates: start: 20160615, end: 20160805
  6. TARCEFOKSYM [Concomitant]
     Indication: INFECTION
     Route: 065
     Dates: end: 20160615
  7. VENORUTON (POLAND) [Concomitant]
     Indication: PRURITUS
     Dosage: 1 TABLET
     Route: 048
     Dates: start: 20160321
  8. BEVACIZUMAB. [Suspect]
     Active Substance: BEVACIZUMAB
     Indication: RENAL CELL CARCINOMA
     Dosage: MOST RECENT DOSE (1290 MG) PRIOR TO EVENT ONSET GIVEN 10/MAY/2016?STARTING DOSE FROM STUDY PROTOCOL
     Route: 042
     Dates: start: 20160125
  9. NEBILENIN [Concomitant]
     Indication: HYPERTENSION
     Route: 048
     Dates: start: 20160213
  10. NITRENDIPINE [Concomitant]
     Active Substance: NITRENDIPINE
     Indication: HYPERTENSION
     Route: 048
     Dates: start: 20160615, end: 20160723
  11. FUROSEMIDUM [Concomitant]
     Active Substance: FUROSEMIDE
     Indication: HYPERTENSION
     Route: 048
     Dates: start: 20160615, end: 20160628
  12. LIOTON [Concomitant]
     Indication: PRURITUS
     Dosage: 1 UNIT
     Route: 061
     Dates: start: 20160321
  13. ESSELIV [Concomitant]
     Indication: DYSPEPSIA
     Route: 048
     Dates: start: 20160404
  14. ATEZOLIZUMAB. [Suspect]
     Active Substance: ATEZOLIZUMAB
     Indication: RENAL CELL CARCINOMA
     Dosage: MOST RECENT DOSE (1200 MG) PRIOR TO EVENT ONSET: 10/MAY/2016?STARTING DOSE FROM STUDY PROTOCOL?EVERY
     Route: 042
     Dates: start: 20160125
  15. KETONAL (POLAND) [Concomitant]
     Indication: PAIN
     Route: 065
     Dates: end: 20160615
  16. KALIPOZ [Concomitant]
     Active Substance: POTASSIUM CHLORIDE
     Indication: HYPOKALAEMIA
     Route: 048
     Dates: start: 20160615, end: 20160805
  17. CIPROPOL [Concomitant]
     Indication: URINARY TRACT INFECTION
     Route: 048
     Dates: start: 20160615

REACTIONS (2)
  - Acute kidney injury [Recovered/Resolved]
  - Urosepsis [Recovered/Resolved]

NARRATIVE: CASE EVENT DATE: 20160525
